FAERS Safety Report 6996565-6 (Version None)
Quarter: 2010Q3

REPORT INFORMATION
  Report Type: 
  Country: None (occurrence: None)
  Receive Date: 20100918
  Receipt Date: 20090407
  Transmission Date: 20110219
  Serious: No
  Sender: FDA-Public Use
  Company Number: US-WYE-H08859909

PATIENT
  Sex: Female
  Weight: 69.46 kg

DRUGS (3)
  1. PREMPRO [Suspect]
     Indication: HOT FLUSH
     Dosage: 0.3/1.5
     Route: 048
     Dates: start: 20081204
  2. PREMPRO [Suspect]
     Dosage: 0.45/1.5
     Route: 048
     Dates: start: 20090101, end: 20090201
  3. PREMPRO [Suspect]
     Dosage: 0.45/1.5
     Route: 048
     Dates: start: 20090301

REACTIONS (4)
  - CONDITION AGGRAVATED [None]
  - DRUG INEFFECTIVE [None]
  - LIBIDO DECREASED [None]
  - METRORRHAGIA [None]
